FAERS Safety Report 4364847-2 (Version None)
Quarter: 2004Q2

REPORT INFORMATION
  Report Type: 
  Country: None (occurrence: None)
  Receive Date: 20040521
  Receipt Date: 20040510
  Transmission Date: 20050107
  Serious: Yes (Hospitalization)
  Sender: FDA-Public Use
  Company Number: USA040567048

PATIENT
  Age: 9 Year
  Sex: Female
  Weight: 78 kg

DRUGS (1)
  1. STRATTERA [Suspect]
     Indication: ATTENTION DEFICIT/HYPERACTIVITY DISORDER
     Dosage: 40 MG DAY
     Dates: start: 20031201, end: 20040506

REACTIONS (7)
  - ABDOMINAL PAIN [None]
  - ABDOMINAL PAIN UPPER [None]
  - DYSPEPSIA [None]
  - EATING DISORDER [None]
  - GASTRIC HAEMORRHAGE [None]
  - HAEMATOCHEZIA [None]
  - STOMACH DISCOMFORT [None]
